FAERS Safety Report 6328258-2 (Version None)
Quarter: 2009Q3

REPORT INFORMATION
  Report Type: 
  Country: None (occurrence: None)
  Receive Date: 20090825
  Receipt Date: 20090226
  Transmission Date: 20100115
  Serious: No
  Sender: FDA-Public Use
  Company Number: US-ABBOTT-09P-163-0560008-00

PATIENT
  Sex: Female
  Weight: 13.847 kg

DRUGS (7)
  1. SYNTHROID [Suspect]
     Indication: HYPOTHYROIDISM
     Dates: start: 20080101, end: 20081201
  2. SYNTHROID [Suspect]
     Dosage: ONE HALF TABLET DAILY
     Dates: start: 20081201, end: 20090101
  3. SYNTHROID [Suspect]
     Dates: start: 20090101
  4. SYNTHROID [Suspect]
  5. VITAMIN D [Concomitant]
     Indication: VITAMIN SUPPLEMENTATION
  6. NEBULIZER [Concomitant]
     Indication: SEASONAL ALLERGY
  7. ALBUTEROL [Concomitant]
     Indication: SEASONAL ALLERGY

REACTIONS (3)
  - ABNORMAL BEHAVIOUR [None]
  - AGGRESSION [None]
  - PRURITUS GENERALISED [None]
